FAERS Safety Report 11470033 (Version 2)
Quarter: 2015Q3

REPORT INFORMATION
  Report Type: Spontaneous
  Country: US (occurrence: US)
  Receive Date: 20150903
  Receipt Date: 20150903
  Transmission Date: 20151125
  Serious: No
  Sender: FDA-Public Use
  Company Number: US-ELI_LILLY_AND_COMPANY-US201111002434

PATIENT
  Age: 38 Year
  Sex: Female

DRUGS (3)
  1. LEXAPRO [Concomitant]
     Active Substance: ESCITALOPRAM OXALATE
     Dosage: 10 DF, UNKNOWN
  2. CYMBALTA [Suspect]
     Active Substance: DULOXETINE HYDROCHLORIDE
     Dosage: 30 MG, BID
  3. MILNACIPRAN HYDROCHLORIDE. [Concomitant]
     Active Substance: MILNACIPRAN HYDROCHLORIDE
     Dosage: 50 DF, UNKNOWN

REACTIONS (2)
  - Pyrexia [Recovered/Resolved]
  - Rash generalised [Recovered/Resolved]
